FAERS Safety Report 5205118-1 (Version None)
Quarter: 2007Q1

REPORT INFORMATION
  Report Type: 
  Country: None (occurrence: None)
  Receive Date: 20070110
  Receipt Date: 20070105
  Transmission Date: 20070707
  Serious: Yes (Hospitalization)
  Sender: FDA-Public Use
  Company Number: DE-BOEHRINGER INGELHEIM PHARMACEUTICALS, INC.-2007-DE-00083DE

PATIENT
  Sex: Male
  Weight: 76 kg

DRUGS (2)
  1. CATAPRESAN 150 [Suspect]
     Route: 048
  2. OMEP [Suspect]
     Route: 048

REACTIONS (4)
  - DRUG ABUSER [None]
  - OVERDOSE [None]
  - SOMNOLENCE [None]
  - SUICIDE ATTEMPT [None]
